FAERS Safety Report 9407553 (Version 1)
Quarter: 2013Q3

REPORT INFORMATION
  Report Type: Spontaneous
  Country: US (occurrence: US)
  Receive Date: 20130718
  Receipt Date: 20130718
  Transmission Date: 20140515
  Serious: Yes (Other)
  Sender: FDA-Public Use
  Company Number: PHHY2013US075388

PATIENT
  Age: 87 Year
  Sex: Male

DRUGS (1)
  1. ACETYLSALICYLIC ACID [Suspect]
     Indication: PROPHYLAXIS

REACTIONS (2)
  - Atrial fibrillation [Unknown]
  - Incorrect drug administration duration [Unknown]
